FAERS Safety Report 20394027 (Version 2)
Quarter: 2022Q1

REPORT INFORMATION
  Report Type: Spontaneous
  Country: ES (occurrence: ES)
  Receive Date: 20220129
  Receipt Date: 20220209
  Transmission Date: 20220423
  Serious: Yes (Hospitalization, Other)
  Sender: FDA-Public Use
  Company Number: ES-ABBVIE-22K-144-4256061-00

PATIENT
  Sex: Male

DRUGS (1)
  1. VENETOCLAX [Suspect]
     Active Substance: VENETOCLAX
     Indication: Product used for unknown indication
     Route: 048

REACTIONS (6)
  - COVID-19 [Unknown]
  - Acute respiratory failure [Unknown]
  - Acute kidney injury [Unknown]
  - White blood cell count decreased [Unknown]
  - Blood lactate dehydrogenase increased [Unknown]
  - Pneumonia [Unknown]

NARRATIVE: CASE EVENT DATE: 20220117
